FAERS Safety Report 17587121 (Version 1)
Quarter: 2020Q1

REPORT INFORMATION
  Report Type: Spontaneous
  Country: US (occurrence: US)
  Receive Date: 20200326
  Receipt Date: 20200326
  Transmission Date: 20200409
  Serious: No
  Sender: FDA-Public Use
  Company Number: US-TEVA-2020-US-1210255

PATIENT
  Age: 68 Year
  Sex: Male

DRUGS (2)
  1. DUTASTERIDE. [Suspect]
     Active Substance: DUTASTERIDE
     Indication: DYSURIA
     Dosage: .5 MILLIGRAM DAILY;
     Route: 065
     Dates: start: 2019, end: 20190529
  2. AMITRIPTYLINE [Suspect]
     Active Substance: AMITRIPTYLINE
     Indication: DEPRESSION
     Dosage: 10 MG ONCE
     Route: 048
     Dates: start: 20190530, end: 20190530

REACTIONS (4)
  - Dizziness [Recovering/Resolving]
  - Depression [Unknown]
  - Nightmare [Unknown]
  - Malaise [Unknown]

NARRATIVE: CASE EVENT DATE: 2019
